FAERS Safety Report 9259553 (Version 1)
Quarter: 2013Q2

REPORT INFORMATION
  Report Type: Spontaneous
  Country: US (occurrence: US)
  Receive Date: 20130429
  Receipt Date: 20130429
  Transmission Date: 20140414
  Serious: Yes (Hospitalization, Other)
  Sender: FDA-Public Use
  Company Number: US-GLENMARK GENERICS INC.-2013GMK005561

PATIENT
  Age: 32 Year
  Sex: Female

DRUGS (1)
  1. NORETHINDRONE + EE (ALYACEN) [Suspect]
     Indication: PRODUCT USED FOR UNKNOWN INDICATION
     Dosage: UNK
     Route: 048
     Dates: start: 201211, end: 20121209

REACTIONS (8)
  - Myocardial infarction [Recovered/Resolved]
  - Chest discomfort [Recovered/Resolved]
  - Nausea [Recovered/Resolved]
  - Chest pain [Recovered/Resolved]
  - Cold sweat [Recovered/Resolved]
  - Coronary artery occlusion [Unknown]
  - Cardiac flutter [Not Recovered/Not Resolved]
  - Tachycardia [Not Recovered/Not Resolved]
